FAERS Safety Report 6060505-7 (Version None)
Quarter: 2009Q1

REPORT INFORMATION
  Report Type: 
  Country: None (occurrence: None)
  Receive Date: 20090202
  Receipt Date: 20090126
  Transmission Date: 20090719
  Serious: Yes (Other)
  Sender: FDA-Public Use
  Company Number: US-BAYER-200910242BCC

PATIENT
  Age: 79 Year
  Sex: Female

DRUGS (1)
  1. ALKA-SELTZER PLUS COLD + COUGH LIQUID GELS [Suspect]
     Indication: DRUG USE FOR UNKNOWN INDICATION

REACTIONS (5)
  - DIZZINESS [None]
  - FALL [None]
  - JOINT INJURY [None]
  - SKELETAL INJURY [None]
  - TRANSIENT ISCHAEMIC ATTACK [None]
